FAERS Safety Report 20478118 (Version 1)
Quarter: 2022Q1

REPORT INFORMATION
  Report Type: Spontaneous
  Country: CN (occurrence: CN)
  Receive Date: 20220216
  Receipt Date: 20220216
  Transmission Date: 20220424
  Serious: Yes (Hospitalization, Other)
  Sender: FDA-Public Use
  Company Number: CN-BRISTOL-MYERS SQUIBB COMPANY-BMS-2022-018464

PATIENT
  Age: 36 Year
  Sex: Female
  Weight: 43 kg

DRUGS (13)
  1. OPDIVO [Suspect]
     Active Substance: NIVOLUMAB
     Indication: Gastric cancer
     Dosage: 360 MILLIGRAM, Q3WK
     Route: 041
     Dates: start: 20210410, end: 20210616
  2. OPDIVO [Suspect]
     Active Substance: NIVOLUMAB
     Dosage: 360 MILLIGRAM, Q3WK
     Route: 041
     Dates: start: 20210723, end: 20211109
  3. OPDIVO [Suspect]
     Active Substance: NIVOLUMAB
     Dosage: 360 MILLIGRAM, Q3WK
     Route: 041
     Dates: start: 20211130
  4. OPDIVO [Suspect]
     Active Substance: NIVOLUMAB
     Dosage: 360 MILLIGRAM, Q3WK
     Route: 041
     Dates: start: 20211221, end: 20211221
  5. PACLITAXEL [Concomitant]
     Active Substance: PACLITAXEL
     Indication: Gastric cancer
     Dosage: 200MG D1 100MG D8
     Route: 065
     Dates: start: 20210410, end: 20210616
  6. PACLITAXEL [Concomitant]
     Active Substance: PACLITAXEL
     Dosage: 200MG D1 100MG D8
     Route: 065
     Dates: start: 20210723, end: 20211109
  7. PACLITAXEL [Concomitant]
     Active Substance: PACLITAXEL
     Dosage: 60MG CHEMOTHERAPY 6 TIMES
     Route: 033
  8. PACLITAXEL [Concomitant]
     Active Substance: PACLITAXEL
     Dosage: 200MG D1 100MG D8
     Route: 065
     Dates: start: 20211130
  9. PACLITAXEL [Concomitant]
     Active Substance: PACLITAXEL
     Dosage: 200MG D1 100MG D8
     Route: 065
     Dates: start: 20211221, end: 20211221
  10. TEGAFUR [Concomitant]
     Active Substance: TEGAFUR
     Indication: Gastric cancer
     Dosage: 50MG BID D1-14, ONCE EVERY 3 WEEKS
     Route: 065
     Dates: start: 20210410, end: 20210616
  11. TEGAFUR [Concomitant]
     Active Substance: TEGAFUR
     Dosage: 50MG BID D1-14 ONCE EVERY 3 WEEKS
     Route: 065
     Dates: start: 20210723, end: 20211109
  12. TEGAFUR [Concomitant]
     Active Substance: TEGAFUR
     Dosage: 50MG BID D1-14 ONCE EVERY 3 WEEKS
     Route: 065
     Dates: start: 20211130
  13. TEGAFUR [Concomitant]
     Active Substance: TEGAFUR
     Dosage: 50MG BID D1-14 ONCE EVERY 3 WEEKS
     Route: 065
     Dates: start: 20211221, end: 20220104

REACTIONS (3)
  - Altered state of consciousness [Recovering/Resolving]
  - Coma [Recovering/Resolving]
  - Immune-mediated encephalitis [Recovering/Resolving]

NARRATIVE: CASE EVENT DATE: 20220121
